FAERS Safety Report 9300001 (Version 1)
Quarter: 2013Q2

REPORT INFORMATION
  Report Type: Spontaneous
  Country: US (occurrence: US)
  Receive Date: 20130521
  Receipt Date: 20130521
  Transmission Date: 20140414
  Serious: Yes (Other)
  Sender: FDA-Public Use
  Company Number: US-BAYER-2013-061882

PATIENT
  Age: 31 Year
  Sex: Female
  Weight: 100.23 kg

DRUGS (5)
  1. YASMIN [Suspect]
  2. METHYLPREDNIS [Concomitant]
     Dosage: 4 MG, UNK
  3. AMOXICILLIN [Concomitant]
     Dosage: 400 MG, UNK
  4. ZYRTEC-D [Concomitant]
     Dosage: 5/120 MG
  5. CELEBREX [Concomitant]
     Dosage: 200 MG, UNK

REACTIONS (1)
  - Deep vein thrombosis [None]
